FAERS Safety Report 7279357-2 (Version None)
Quarter: 2011Q1

REPORT INFORMATION
  Report Type: 
  Country: None (occurrence: None)
  Receive Date: 20110208
  Receipt Date: 20110127
  Transmission Date: 20110831
  Serious: Yes (Hospitalization, Disabling)
  Sender: FDA-Public Use
  Company Number: JP-AMGEN-JPNSP2010005249

PATIENT
  Age: 63 Year
  Sex: Female
  Weight: 49 kg

DRUGS (9)
  1. ENBREL [Suspect]
     Indication: RHEUMATOID ARTHRITIS
     Dosage: 25 MG, WEEKLY
     Route: 058
     Dates: start: 20101008, end: 20101023
  2. PREDONINE [Concomitant]
     Dosage: 7.5 MG, 1X/DAY
     Dates: start: 20100701, end: 20100901
  3. ALFACALCIDOL [Concomitant]
     Dosage: 0.5 UG, ALTERNATE DAY
  4. ALENDRONATE SODIUM [Concomitant]
     Dosage: 35 MG, 1X/DAY
  5. PREDONINE [Concomitant]
     Dosage: 5 MG, QID
     Dates: start: 20100903
  6. SIMVASTATIN [Concomitant]
     Dosage: 5 MG, 1X/DAY
  7. RABEPRAZOLE SODIUM [Concomitant]
     Dosage: 10 MG, 1X/DAY
  8. TEPRENONE [Concomitant]
     Dosage: 50 MG, 1X/DAY
  9. PREDONINE [Concomitant]
     Dosage: 5 MG, 1X/DAY

REACTIONS (2)
  - VIITH NERVE PARALYSIS [None]
  - VISION BLURRED [None]
